FAERS Safety Report 12659938 (Version 1)
Quarter: 2016Q3

REPORT INFORMATION
  Report Type: Spontaneous
  Country: US (occurrence: US)
  Receive Date: 20160817
  Receipt Date: 20160817
  Transmission Date: 20161109
  Serious: No
  Sender: FDA-Public Use
  Company Number: US-SHIRE-2016DX000225

PATIENT

DRUGS (4)
  1. KALBITOR [Suspect]
     Active Substance: ECALLANTIDE
     Dosage: 30 MG, AS REQ^D
     Route: 058
  2. DANAZOL. [Concomitant]
     Active Substance: DANAZOL
     Indication: PRODUCT USED FOR UNKNOWN INDICATION
     Dosage: 100 MG, AS REQ^D
     Route: 048
  3. KALBITOR [Suspect]
     Active Substance: ECALLANTIDE
     Dosage: 30 MG, 2X/DAY:BID
     Route: 058
     Dates: start: 201602
  4. KALBITOR [Suspect]
     Active Substance: ECALLANTIDE
     Indication: HEREDITARY ANGIOEDEMA
     Dosage: 30 MG, 1X/DAY:QD
     Route: 058
     Dates: start: 201606, end: 201606

REACTIONS (2)
  - Drug ineffective [Unknown]
  - Epistaxis [Recovered/Resolved]

NARRATIVE: CASE EVENT DATE: 201602
